FAERS Safety Report 5319999-4 (Version None)
Quarter: 2007Q1

REPORT INFORMATION
  Report Type: 
  Country: None (occurrence: None)
  Receive Date: 20070201
  Receipt Date: 20061017
  Transmission Date: 20070707
  Serious: Yes (Hospitalization)
  Sender: FDA-Public Use
  Company Number: 2006BH014151

PATIENT
  Age: 61 Year
  Sex: Male
  Weight: 130 kg

DRUGS (1)
  1. DIANEAL [Suspect]
     Indication: RENAL FAILURE CHRONIC
     Dosage: IP
     Route: 033

REACTIONS (1)
  - PERITONITIS [None]
